FAERS Safety Report 7250665-4 (Version None)
Quarter: 2011Q1

REPORT INFORMATION
  Report Type: 
  Country: None (occurrence: None)
  Receive Date: 20110121
  Receipt Date: 20110121
  Transmission Date: 20110831
  Serious: Yes (Hospitalization)
  Sender: FDA-Public Use
  Company Number: None

PATIENT
  Age: 61 Year
  Sex: Female
  Weight: 63.5036 kg

DRUGS (2)
  1. ALCOHOL PREP PRODUCT N/A TRIAD GROUP [Suspect]
     Indication: INFECTION PROPHYLAXIS
     Dosage: ONE EVERY OTHER DAY TOP
     Route: 061
     Dates: start: 20100101, end: 20110120
  2. BETASERONE INJECTIONS [Concomitant]

REACTIONS (9)
  - RASH [None]
  - FATIGUE [None]
  - PAIN [None]
  - INFECTION [None]
  - INJECTION SITE SWELLING [None]
  - HEADACHE [None]
  - INJECTION SITE PAIN [None]
  - IMPAIRED HEALING [None]
  - INFLUENZA LIKE ILLNESS [None]
